FAERS Safety Report 5623006-3 (Version None)
Quarter: 2008Q1

REPORT INFORMATION
  Report Type: 
  Country: None (occurrence: None)
  Receive Date: 20080207
  Receipt Date: 20080131
  Transmission Date: 20080703
  Serious: Yes (Hospitalization, Disabling)
  Sender: FDA-Public Use
  Company Number: 2008-00578

PATIENT
  Age: 18 Year
  Sex: Male

DRUGS (1)
  1. CORDRAN SP [Suspect]
     Indication: CONJUNCTIVITIS
     Dosage: LONG-TERM USE, OPTHALMIC
     Route: 047

REACTIONS (2)
  - OPEN ANGLE GLAUCOMA [None]
  - TREATMENT NONCOMPLIANCE [None]
